FAERS Safety Report 23189541 (Version 1)
Quarter: 2023Q4

REPORT INFORMATION
  Report Type: Spontaneous
  Country: CA (occurrence: CA)
  Receive Date: 20231116
  Receipt Date: 20231116
  Transmission Date: 20240110
  Serious: Yes (Hospitalization)
  Sender: FDA-Public Use
  Company Number: CA-TEVA-2022-CA-2026646

PATIENT
  Age: 45 Year
  Sex: Male

DRUGS (3)
  1. TEMOZOLOMIDE [Suspect]
     Active Substance: TEMOZOLOMIDE
     Indication: Astrocytoma
     Route: 065
  2. DAPSONE [Concomitant]
     Active Substance: DAPSONE
  3. LEVETIRACETAM [Concomitant]
     Active Substance: LEVETIRACETAM
     Route: 065

REACTIONS (5)
  - Anxiety [Unknown]
  - Neutropenia [Unknown]
  - Platelet transfusion [Unknown]
  - Thrombocytopenia [Unknown]
  - Platelet count decreased [Unknown]
